FAERS Safety Report 11633694 (Version 1)
Quarter: 2015Q4

REPORT INFORMATION
  Report Type: Spontaneous
  Country: US (occurrence: US)
  Receive Date: 20151015
  Receipt Date: 20151015
  Transmission Date: 20160304
  Serious: No
  Sender: FDA-Public Use
  Company Number: US-INDIVIOR-RB-74412-2014

PATIENT
  Age: 25 Year
  Sex: Female

DRUGS (1)
  1. SUBOXONE [Suspect]
     Active Substance: BUPRENORPHINE HYDROCHLORIDE\NALOXONE HYDROCHLORIDE
     Indication: TOOTHACHE
     Dosage: 4MG, ONE TIME DOSE
     Route: 060
     Dates: start: 20141216, end: 20141216

REACTIONS (3)
  - Product preparation error [Recovered/Resolved]
  - Euphoric mood [Recovered/Resolved]
  - Substance abuse [Recovered/Resolved]

NARRATIVE: CASE EVENT DATE: 20141216
